FAERS Safety Report 25089247 (Version 2)
Quarter: 2025Q2

REPORT INFORMATION
  Report Type: Spontaneous
  Country: US (occurrence: US)
  Receive Date: 20250318
  Receipt Date: 20250403
  Transmission Date: 20250716
  Serious: No
  Sender: PFIZER
  Company Number: US-PFIZER INC-202500057487

PATIENT
  Age: 68 Year
  Sex: Female
  Weight: 69.85 kg

DRUGS (1)
  1. PREMARIN [Suspect]
     Active Substance: ESTROGENS, CONJUGATED
     Indication: Cystocele
     Dosage: 1/4 INCH IN THE APPLICATOR TWICE A WEEK
     Dates: end: 202406

REACTIONS (4)
  - Pruritus [Recovered/Resolved]
  - Poor quality product administered [Recovered/Resolved]
  - Product formulation issue [Recovered/Resolved]
  - Off label use [Unknown]

NARRATIVE: CASE EVENT DATE: 20240622
